FAERS Safety Report 17229574 (Version 1)
Quarter: 2019Q4

REPORT INFORMATION
  Report Type: Spontaneous
  Country: US (occurrence: US)
  Receive Date: 20191210
  Receipt Date: 20191210
  Transmission Date: 20200122
  Serious: Yes (Other)
  Sender: FDA-Public Use
  Company Number: None

PATIENT
  Age: 59 Year
  Sex: Male
  Weight: 78.93 kg

DRUGS (12)
  1. DEPAKOTE [Concomitant]
     Active Substance: DIVALPROEX SODIUM
  2. TOPAMAX [Concomitant]
     Active Substance: TOPIRAMATE
  3. METFORMIN [Concomitant]
     Active Substance: METFORMIN HYDROCHLORIDE
  4. TRADJENTA [Concomitant]
     Active Substance: LINAGLIPTIN
  5. JARDIANCE [Concomitant]
     Active Substance: EMPAGLIFLOZIN
  6. 8/MG ASPIRIN [Concomitant]
  7. PROZAC [Suspect]
     Active Substance: FLUOXETINE HYDROCHLORIDE
     Indication: DEPRESSION
     Dosage: ?          QUANTITY:1 @ BEDTIME;?
     Route: 048
     Dates: start: 201905, end: 201907
  8. COGENTIN [Concomitant]
     Active Substance: BENZTROPINE MESYLATE
  9. PROSESSEIN [Concomitant]
  10. HALDOL [Concomitant]
     Active Substance: HALOPERIDOL
  11. ATORVASTATIN [Concomitant]
     Active Substance: ATORVASTATIN
  12. VIT D [Concomitant]
     Active Substance: VITAMIN D NOS

REACTIONS (2)
  - Mental disorder [None]
  - Aggression [None]

NARRATIVE: CASE EVENT DATE: 20191026
